FAERS Safety Report 24538804 (Version 1)
Quarter: 2024Q4

REPORT INFORMATION
  Report Type: Report from Study
  Country: MX (occurrence: MX)
  Receive Date: 20241023
  Receipt Date: 20241023
  Transmission Date: 20250115
  Serious: Yes (Other)
  Sender: BIOVITRUM
  Company Number: MX-AstraZeneca-CH-00718326A

PATIENT
  Age: 3 Month
  Sex: Female
  Weight: 2.5 kg

DRUGS (6)
  1. PALIVIZUMAB [Suspect]
     Active Substance: PALIVIZUMAB
     Indication: Bronchopulmonary dysplasia
     Dosage: 1ST DOSE?MONTHLY
     Route: 030
     Dates: start: 20240930
  2. PRAZOSIN [Concomitant]
     Active Substance: PRAZOSIN\PRAZOSIN HYDROCHLORIDE
     Indication: Hypertension
     Dosage: UNK
     Route: 065
     Dates: start: 202408
  3. HYDRALAZINE [Concomitant]
     Active Substance: HYDRALAZINE HYDROCHLORIDE
     Indication: Hypertension
     Dosage: 3 MILLILITER, Q8H
     Route: 065
     Dates: start: 202408
  4. FLUTICASONE [Concomitant]
     Active Substance: FLUTICASONE
     Indication: Bronchopulmonary dysplasia
     Dosage: 2 DOSAGE FORM, Q12H
     Route: 065
     Dates: start: 202408
  5. ALBUTEROL [Concomitant]
     Active Substance: ALBUTEROL
     Indication: Bronchopulmonary dysplasia
     Dosage: 1 DOSAGE FORM, Q12H
     Route: 065
     Dates: start: 202408
  6. METOCLOPRAMIDE [Concomitant]
     Active Substance: METOCLOPRAMIDE
     Indication: Product used for unknown indication
     Dosage: 2 DROP, Q8H
     Route: 065
     Dates: start: 202408

REACTIONS (3)
  - Cyanosis neonatal [Recovered/Resolved]
  - Somnolence [Recovered/Resolved]
  - Decreased appetite [Recovered/Resolved]

NARRATIVE: CASE EVENT DATE: 20240930
